FAERS Safety Report 6839501-5 (Version None)
Quarter: 2010Q3

REPORT INFORMATION
  Report Type: 
  Country: None (occurrence: None)
  Receive Date: 20100714
  Receipt Date: 20100322
  Transmission Date: 20110219
  Serious: No
  Sender: FDA-Public Use
  Company Number: A0810752A

PATIENT
  Age: 68 Year
  Sex: Female

DRUGS (12)
  1. FLOVENT [Suspect]
     Indication: WHEEZING
     Dosage: 2PUFF TWICE PER DAY
     Route: 055
     Dates: start: 20030101
  2. ZETIA [Concomitant]
  3. NIASPAN [Concomitant]
  4. SUPPLEMENT [Concomitant]
  5. LACTIC ACID [Concomitant]
  6. FISH OIL [Concomitant]
  7. VITAMIN C [Concomitant]
  8. CALCIUM CITRATE [Concomitant]
  9. CALCIUM, MAGNESIUM, ZINC [Concomitant]
  10. GLUCOSAMINE [Concomitant]
  11. PYRIDOXINE HCL [Concomitant]
  12. VITAMINE E [Concomitant]

REACTIONS (5)
  - COUGH [None]
  - DRUG INEFFECTIVE [None]
  - DYSPHONIA [None]
  - PRODUCT QUALITY ISSUE [None]
  - WHEEZING [None]
